FAERS Safety Report 8023155-9 (Version None)
Quarter: 2012Q1

REPORT INFORMATION
  Report Type: 
  Country: None (occurrence: None)
  Receive Date: 20120104
  Receipt Date: 20111225
  Transmission Date: 20120608
  Serious: No
  Sender: FDA-Public Use
  Company Number: US-B.I. PHARMACEUTICALS,INC./RIDGEFIELD-2011-BP-28816BP

PATIENT
  Age: 46 Year
  Sex: Male

DRUGS (1)
  1. ZANTAC [Suspect]
     Route: 048
     Dates: start: 20111218

REACTIONS (1)
  - GASTROOESOPHAGEAL REFLUX DISEASE [None]
